FAERS Safety Report 19243898 (Version 2)
Quarter: 2021Q2

REPORT INFORMATION
  Report Type: Spontaneous
  Country: FR (occurrence: FR)
  Receive Date: 20210511
  Receipt Date: 20210517
  Transmission Date: 20210717
  Serious: Yes (Other)
  Sender: FDA-Public Use
  Company Number: FR-ABBVIE-21K-056-3897906-00

PATIENT
  Age: 47 Year
  Sex: Male

DRUGS (3)
  1. ZELITREX [Concomitant]
     Active Substance: VALACYCLOVIR HYDROCHLORIDE
     Indication: PRODUCT USED FOR UNKNOWN INDICATION
  2. ORACILLINE [Concomitant]
     Active Substance: PENICILLIN V
     Indication: PRODUCT USED FOR UNKNOWN INDICATION
  3. VENCLYXTO [Suspect]
     Active Substance: VENETOCLAX
     Indication: LYMPHANGIOLEIOMYOMATOSIS
     Route: 048

REACTIONS (2)
  - Off label use [Unknown]
  - Acute myeloid leukaemia recurrent [Unknown]
